FAERS Safety Report 6558023-2 (Version None)
Quarter: 2010Q1

REPORT INFORMATION
  Report Type: 
  Country: None (occurrence: None)
  Receive Date: 20100129
  Receipt Date: 20100119
  Transmission Date: 20100710
  Serious: Yes (Other)
  Sender: FDA-Public Use
  Company Number: DK-ELI_LILLY_AND_COMPANY-DK201001004145

PATIENT
  Sex: Male
  Weight: 83 kg

DRUGS (1)
  1. ZYPREXA [Suspect]
     Dosage: 15 MG, EACH EVENING
     Route: 048
     Dates: start: 20091105

REACTIONS (2)
  - DEAFNESS [None]
  - OVERDOSE [None]
